FAERS Safety Report 9393302 (Version 2)
Quarter: 2013Q3

REPORT INFORMATION
  Report Type: Not Available
  Country: IT (occurrence: IT)
  Receive Date: 20130710
  Receipt Date: 20130830
  Transmission Date: 20140515
  Serious: Yes (Other)
  Sender: FDA-Public Use
  Company Number: IT-NAPPMUNDI-GBR-2013-0014794

PATIENT
  Age: 89 Year
  Sex: Female

DRUGS (5)
  1. OXYCONTIN 10 MG COMPRESSE A RILASCIO PROLUNGATO [Suspect]
     Indication: TRIGEMINAL NEURALGIA
     Dosage: 10 MG, DAILY
     Route: 048
     Dates: start: 20130506, end: 20130510
  2. LYRICA [Suspect]
     Indication: TRIGEMINAL NEURALGIA
     Dosage: 75 MG, TID
     Route: 048
     Dates: start: 20130506, end: 20130510
  3. TOLEP [Suspect]
     Indication: TRIGEMINAL NEURALGIA
     Dosage: 300 MG, DAILY
     Route: 048
     Dates: start: 20130508, end: 20130510
  4. ENALAPRIL [Concomitant]
     Route: 048
  5. LAROXYL [Concomitant]
     Route: 048

REACTIONS (5)
  - Delirium [Recovered/Resolved]
  - Pyrexia [Recovered/Resolved]
  - Sopor [Recovered/Resolved]
  - Urinary retention [Recovered/Resolved]
  - Abdominal pain [Recovered/Resolved]
